FAERS Safety Report 7362898 (Version 3)
Quarter: 2012Q4

REPORT INFORMATION
  Report Type: 
  Country: US (occurrence: US)
  Receive Date: 20100422
  Receipt Date: 20121024
  Transmission Date: 20130627
  Serious: No
  Sender: FDA-Public Use
  Company Number: US-ASTRAZENECA-2009SE24330

PATIENT
  Age: 63 Year
  Sex: Female

DRUGS (8)
  1. NEXIUM [Suspect]
     Route: 048
  2. TOPROL XL [Suspect]
     Dosage: MORNING
     Route: 048
  3. TOPROL XL [Suspect]
     Route: 048
  4. TOPROL XL [Suspect]
     Route: 048
  5. CRESTOR [Suspect]
     Route: 048
  6. BABY ASPIRIN [Concomitant]
  7. SYNTHROID [Concomitant]
  8. OTHER MEDICATIONS [Concomitant]

REACTIONS (8)
  - Pollakiuria [Unknown]
  - Tremor [Unknown]
  - Hot flush [Unknown]
  - Menopause [Unknown]
  - Cardiac flutter [Unknown]
  - Muscle spasms [Unknown]
  - Fatigue [Unknown]
  - Muscular weakness [Not Recovered/Not Resolved]
